FAERS Safety Report 8061815-4 (Version None)
Quarter: 2012Q1

REPORT INFORMATION
  Report Type: 
  Country: None (occurrence: None)
  Receive Date: 20120123
  Receipt Date: 20120119
  Transmission Date: 20120608
  Serious: No
  Sender: FDA-Public Use
  Company Number: US-PFIZER INC-2012016944

PATIENT
  Sex: Female
  Weight: 79.365 kg

DRUGS (3)
  1. CHANTIX [Suspect]
     Dosage: UNK
  2. WELLBUTRIN [Concomitant]
     Indication: FIBROMYALGIA
     Dosage: 300 MG, DAILY
  3. CHANTIX [Suspect]
     Indication: SMOKING CESSATION THERAPY
     Dosage: UNK
     Route: 048
     Dates: start: 20110901, end: 20110101

REACTIONS (1)
  - ABNORMAL DREAMS [None]
